FAERS Safety Report 6430194-8 (Version None)
Quarter: 2009Q4

REPORT INFORMATION
  Report Type: 
  Country: None (occurrence: None)
  Receive Date: 20091104
  Receipt Date: 20091028
  Transmission Date: 20100525
  Serious: No
  Sender: FDA-Public Use
  Company Number: APP200900721

PATIENT
  Age: 63 Year
  Sex: Male

DRUGS (11)
  1. DIPRIVAN [Suspect]
     Indication: SEDATION
     Dates: start: 20090816, end: 20090801
  2. CLEVIPREX (CLEVIDIPINE BUTYRATE) EMULSION FOR INFUSION [Suspect]
     Indication: BLOOD PRESSURE
     Dosage: SEE IMAGE
     Route: 042
     Dates: start: 20090816, end: 20090816
  3. CLEVIPREX (CLEVIDIPINE BUTYRATE) EMULSION FOR INFUSION [Suspect]
     Indication: BLOOD PRESSURE
     Dosage: SEE IMAGE
     Route: 042
     Dates: start: 20090816, end: 20090816
  4. CLEVIPREX (CLEVIDIPINE BUTYRATE) EMULSION FOR INFUSION [Suspect]
     Indication: BLOOD PRESSURE
     Dosage: SEE IMAGE
     Route: 042
     Dates: start: 20090816, end: 20090816
  5. CLEVIPREX (CLEVIDIPINE BUTYRATE) EMULSION FOR INFUSION [Suspect]
     Indication: BLOOD PRESSURE
     Dosage: SEE IMAGE
     Route: 042
     Dates: start: 20090816, end: 20090816
  6. CLEVIPREX (CLEVIDIPINE BUTYRATE) EMULSION FOR INFUSION [Suspect]
     Indication: BLOOD PRESSURE
     Dosage: SEE IMAGE
     Route: 042
     Dates: start: 20090816, end: 20090816
  7. CLEVIPREX (CLEVIDIPINE BUTYRATE) EMULSION FOR INFUSION [Suspect]
     Indication: BLOOD PRESSURE
     Dosage: SEE IMAGE
     Route: 042
     Dates: start: 20090817, end: 20090818
  8. CLEVIPREX (CLEVIDIPINE BUTYRATE) EMULSION FOR INFUSION [Suspect]
     Indication: BLOOD PRESSURE
     Dosage: SEE IMAGE
     Route: 042
     Dates: start: 20090818, end: 20090825
  9. DEXMEDETOMIDINE (DEXMEDETOMIDINE) [Suspect]
     Indication: SEDATION
     Dates: start: 20090816, end: 20090801
  10. CARDENE [Concomitant]
  11. ESMOLOL (ESMOLOL) [Concomitant]

REACTIONS (4)
  - CIRCULATORY COLLAPSE [None]
  - HYPERTENSION [None]
  - OXYGEN SATURATION DECREASED [None]
  - RESPIRATORY GAS EXCHANGE DISORDER [None]
